FAERS Safety Report 11279374 (Version 1)
Quarter: 2015Q3

REPORT INFORMATION
  Report Type: Report from Study
  Country: UA (occurrence: UA)
  Receive Date: 20150717
  Receipt Date: 20150717
  Transmission Date: 20151125
  Serious: Yes (Hospitalization)
  Sender: FDA-Public Use
  Company Number: UA-SA-CAMP-1002857

PATIENT
  Age: 25 Year
  Sex: Male
  Weight: 71.5 kg

DRUGS (7)
  1. ALEMTUZUMAB [Suspect]
     Active Substance: ALEMTUZUMAB
     Indication: MULTIPLE SCLEROSIS
     Dosage: UNK DOSE:10 MILLIGRAM(S)/MILLILITRE
     Route: 042
     Dates: start: 20100928, end: 20101002
  2. ALEMTUZUMAB [Suspect]
     Active Substance: ALEMTUZUMAB
     Indication: MULTIPLE SCLEROSIS
     Dosage: UNK UNK, UNK DOSE:10 MILLIGRAM(S)/MILLILITRE
     Route: 042
     Dates: start: 20110921, end: 20110923
  3. ALEMTUZUMAB [Suspect]
     Active Substance: ALEMTUZUMAB
     Indication: MULTIPLE SCLEROSIS
     Dosage: UNK DOSE:10 MILLIGRAM(S)/MILLILITRE
     Route: 042
     Dates: start: 20100928, end: 20101002
  4. METHYLPREDNISOLONE. [Concomitant]
     Active Substance: METHYLPREDNISOLONE
     Route: 042
     Dates: start: 20100928, end: 20100930
  5. METHYLPREDNISOLONE. [Concomitant]
     Active Substance: METHYLPREDNISOLONE
     Route: 042
     Dates: start: 20110921, end: 20110923
  6. DEXON [Concomitant]
  7. REBIF [Concomitant]
     Active Substance: INTERFERON BETA-1A
     Indication: MULTIPLE SCLEROSIS
     Dosage: UNK UNK, 3X/W
     Route: 059

REACTIONS (1)
  - Pulmonary tuberculosis [Recovered/Resolved with Sequelae]

NARRATIVE: CASE EVENT DATE: 20130319
